FAERS Safety Report 9339228 (Version 1)
Quarter: 2013Q2

REPORT INFORMATION
  Report Type: Report from Study
  Country: IT (occurrence: IT)
  Receive Date: 20130610
  Receipt Date: 20130610
  Transmission Date: 20140414
  Serious: Yes (Other)
  Sender: FDA-Public Use
  Company Number: IT-ROCHE-1231517

PATIENT
  Sex: Female

DRUGS (1)
  1. CLONAZEPAM [Suspect]
     Indication: EPILEPSY
     Route: 065

REACTIONS (3)
  - Abortion spontaneous [Unknown]
  - Abortion induced [Unknown]
  - Exposure during pregnancy [Unknown]
